FAERS Safety Report 16171320 (Version 1)
Quarter: 2019Q2

REPORT INFORMATION
  Report Type: Spontaneous
  Country: US (occurrence: US)
  Receive Date: 20190408
  Receipt Date: 20190408
  Transmission Date: 20190711
  Serious: No
  Sender: FDA-Public Use
  Company Number: US-TARO-2018TAR00720

PATIENT
  Age: 78 Year
  Sex: Male
  Weight: 97.51 kg

DRUGS (5)
  1. FLUOROURACIL TOPICAL CREAM USP 5% [Suspect]
     Active Substance: FLUOROURACIL
     Indication: SOLAR LENTIGO
     Dosage: A LIBERAL AMOUNT, 2X/DAY
     Route: 061
     Dates: start: 201809
  2. UNSPECIFIED HIGH BLOOD PRESSURE MEDICATION [Concomitant]
     Active Substance: UNSPECIFIED INGREDIENT
  3. UNSPECIFIED PROSTATE MEDICATION [Concomitant]
  4. UNSPECIFIED DIABETES MEDICATION [Concomitant]
  5. UNSPECIFIED CHOLESTEROL MEDICATION [Concomitant]
     Active Substance: UNSPECIFIED INGREDIENT

REACTIONS (1)
  - Application site pain [Not Recovered/Not Resolved]

NARRATIVE: CASE EVENT DATE: 201809
